FAERS Safety Report 15804940 (Version 3)
Quarter: 2020Q1

REPORT INFORMATION
  Report Type: Spontaneous
  Country: FI (occurrence: FI)
  Receive Date: 20190110
  Receipt Date: 20200325
  Transmission Date: 20200409
  Serious: Yes (Hospitalization, Other)
  Sender: FDA-Public Use
  Company Number: FI-BRISTOL-MYERS SQUIBB COMPANY-BMS-2018-123752

PATIENT
  Age: 29 Year
  Sex: Male

DRUGS (1)
  1. OPDIVO [Suspect]
     Active Substance: NIVOLUMAB
     Indication: MALIGNANT MELANOMA
     Dosage: 3 MILLIGRAM/KILOGRAM, Q2WK
     Route: 042
     Dates: start: 20180801, end: 20181203

REACTIONS (7)
  - Pruritus [Recovered/Resolved]
  - Troponin T increased [Recovered/Resolved]
  - Electrocardiogram ST segment elevation [Unknown]
  - Hyperthyroidism [Recovered/Resolved]
  - Alanine aminotransferase increased [Recovered/Resolved]
  - Ventricular hypokinesia [Recovered/Resolved]
  - Fatigue [Unknown]

NARRATIVE: CASE EVENT DATE: 201812
